FAERS Safety Report 7733865-6 (Version None)
Quarter: 2011Q3

REPORT INFORMATION
  Report Type: 
  Country: None (occurrence: None)
  Receive Date: 20110907
  Receipt Date: 20110902
  Transmission Date: 20111222
  Serious: No
  Sender: FDA-Public Use
  Company Number: US-PFIZER INC-2011207784

PATIENT
  Sex: Female

DRUGS (2)
  1. NAPROXEN [Suspect]
  2. ADVIL LIQUI-GELS [Suspect]

REACTIONS (1)
  - GASTRITIS [None]
